FAERS Safety Report 6625446-2 (Version None)
Quarter: 2010Q1

REPORT INFORMATION
  Report Type: 
  Country: None (occurrence: None)
  Receive Date: 20100310
  Receipt Date: 20090827
  Transmission Date: 20100710
  Serious: Yes (Other)
  Sender: FDA-Public Use
  Company Number: US-BIOGENIDEC-2009BI027313

PATIENT
  Sex: Female

DRUGS (3)
  1. AVONEX [Suspect]
     Indication: MULTIPLE SCLEROSIS
     Route: 030
     Dates: start: 20070301
  2. KEPPRA [Concomitant]
     Indication: CONVULSION
     Route: 048
  3. CARBAMAZEPINE [Concomitant]
     Indication: CONVULSION
     Route: 048

REACTIONS (7)
  - ASTHENIA [None]
  - CONVULSION [None]
  - DEPRESSION [None]
  - FEELING ABNORMAL [None]
  - INJECTION SITE PAIN [None]
  - NO ADVERSE EVENT [None]
  - TREMOR [None]
